FAERS Safety Report 8571281-8 (Version None)
Quarter: 2012Q3

REPORT INFORMATION
  Report Type: 
  Country: None (occurrence: None)
  Receive Date: 20120806
  Receipt Date: 20120726
  Transmission Date: 20120928
  Serious: Yes (Hospitalization, Other)
  Sender: FDA-Public Use
  Company Number: JP-VERTEX PHARMACEUTICALS INC.-AE-2012-010892

PATIENT
  Age: 69 Year
  Sex: Female

DRUGS (7)
  1. VALSARTAN  AND HYDROCHLOROTHIAZIDE [Concomitant]
     Route: 048
  2. TELAVIC (TELAPREVIR) [Suspect]
     Route: 048
     Dates: start: 20120703, end: 20120709
  3. TELAVIC (TELAPREVIR) [Suspect]
     Indication: HEPATITIS C
     Route: 048
     Dates: start: 20120611, end: 20120615
  4. REBETOL [Concomitant]
     Indication: HEPATITIS C
     Route: 048
     Dates: start: 20120611, end: 20120624
  5. TELAVIC (TELAPREVIR) [Suspect]
     Route: 048
     Dates: start: 20120616, end: 20120702
  6. REBETOL [Concomitant]
     Route: 048
     Dates: start: 20120625, end: 20120716
  7. PEG-INTRON [Concomitant]
     Indication: HEPATITIS C
     Route: 058
     Dates: start: 20120611

REACTIONS (3)
  - DIZZINESS [None]
  - HAEMOGLOBIN DECREASED [None]
  - NAUSEA [None]
